FAERS Safety Report 12640537 (Version 1)
Quarter: 2016Q3

REPORT INFORMATION
  Report Type: Spontaneous
  Country: AU (occurrence: AU)
  Receive Date: 20160810
  Receipt Date: 20160810
  Transmission Date: 20161109
  Serious: No
  Sender: FDA-Public Use
  Company Number: AU-ELI_LILLY_AND_COMPANY-AU201607013260

PATIENT
  Sex: Female
  Weight: 72 kg

DRUGS (1)
  1. ZYPREXA [Suspect]
     Active Substance: OLANZAPINE
     Indication: PSYCHOTIC DISORDER
     Dosage: 10 MG, EACH EVENING
     Route: 048
     Dates: start: 20160331, end: 20160429

REACTIONS (2)
  - Alopecia [Recovered/Resolved]
  - Haemoglobin decreased [Unknown]
